FAERS Safety Report 4517871-0 (Version None)
Quarter: 2004Q4

REPORT INFORMATION
  Report Type: 
  Country: None (occurrence: None)
  Receive Date: 20041203
  Receipt Date: 20041124
  Transmission Date: 20050328
  Serious: Yes (Other)
  Sender: FDA-Public Use
  Company Number: CA-MERCK-0411CAN00236

PATIENT
  Age: 73 Year
  Sex: Male
  Weight: 70 kg

DRUGS (14)
  1. VIOXX [Suspect]
     Route: 048
     Dates: start: 19990710, end: 20020101
  2. EPOETIN ALFA [Suspect]
     Indication: NEPHROGENIC ANAEMIA
     Route: 058
     Dates: start: 20010913, end: 20040426
  3. DARBEPOETIN ALFA [Suspect]
     Indication: NEPHROGENIC ANAEMIA
     Route: 058
     Dates: start: 20040426
  4. COZAAR [Concomitant]
     Route: 048
  5. RAMIPRIL [Concomitant]
     Route: 048
  6. CALCITRIOL [Concomitant]
     Route: 048
  7. FERROUS FUMARATE [Concomitant]
     Route: 048
  8. ALLOPURINOL [Suspect]
     Route: 048
     Dates: start: 19990110, end: 20040913
  9. LEUPROLIDE ACETATE [Suspect]
     Indication: PROSTATE CANCER
     Route: 065
     Dates: start: 19990710
  10. ZETIA [Concomitant]
     Route: 048
  11. WARFARIN [Concomitant]
     Route: 048
  12. OMEPRAZOLE MAGNESIUM [Concomitant]
     Route: 048
  13. DIGOXIN [Concomitant]
     Route: 048
  14. HYDROCHLOROTHIAZIDE AND SPIRONOLACTONE [Concomitant]
     Route: 048

REACTIONS (4)
  - BLOOD PARATHYROID HORMONE INCREASED [None]
  - REFRACTORY ANAEMIA [None]
  - RETICULOCYTE COUNT DECREASED [None]
  - THERAPY NON-RESPONDER [None]
